FAERS Safety Report 7018893-0 (Version None)
Quarter: 2010Q3

REPORT INFORMATION
  Report Type: 
  Country: None (occurrence: None)
  Receive Date: 20100928
  Receipt Date: 20100916
  Transmission Date: 20110219
  Serious: Yes (Hospitalization)
  Sender: FDA-Public Use
  Company Number: US-ELI_LILLY_AND_COMPANY-US201008007160

PATIENT
  Sex: Female

DRUGS (5)
  1. FORTEO [Suspect]
     Indication: OSTEOPOROSIS
     Dosage: 20 UG, DAILY (1/D)
     Dates: start: 20100810
  2. COUMADIN [Concomitant]
     Indication: CONTUSION
  3. TAMOXIFEN CITRATE [Concomitant]
     Indication: BREAST CANCER
  4. BYETTA [Concomitant]
  5. OXYGEN [Concomitant]

REACTIONS (6)
  - CONTUSION [None]
  - DIZZINESS [None]
  - FATIGUE [None]
  - HOSPITALISATION [None]
  - HOT FLUSH [None]
  - PAIN [None]
